FAERS Safety Report 4971099-9 (Version None)
Quarter: 2006Q1

REPORT INFORMATION
  Report Type: 
  Country: None (occurrence: None)
  Receive Date: 20060228
  Receipt Date: 20051110
  Transmission Date: 20060701
  Serious: Yes (Hospitalization)
  Sender: FDA-Public Use
  Company Number: 05P-131-0317117-00

PATIENT
  Age: 59 Year
  Sex: Female

DRUGS (4)
  1. TRICOR [Suspect]
     Indication: HYPERTRIGLYCERIDAEMIA
     Dosage: 145 MG, 1 IN 1 D, PER ORAL
     Route: 048
     Dates: start: 20051024, end: 20051027
  2. LEVOTHYROXINE SODIUM [Concomitant]
  3. ENALAPRIL MALEATE [Concomitant]
  4. DILTIAZEM [Concomitant]

REACTIONS (4)
  - ARRHYTHMIA [None]
  - FEELING ABNORMAL [None]
  - LOSS OF CONSCIOUSNESS [None]
  - OEDEMA [None]
